FAERS Safety Report 5446772-9 (Version None)
Quarter: 2007Q3

REPORT INFORMATION
  Report Type: 
  Country: None (occurrence: None)
  Receive Date: 20070907
  Receipt Date: 20070827
  Transmission Date: 20080115
  Serious: Yes (Other)
  Sender: FDA-Public Use
  Company Number: US-PFIZER INC-2007072259

PATIENT
  Sex: Female
  Weight: 60.454 kg

DRUGS (17)
  1. LYRICA [Suspect]
     Indication: FIBROMYALGIA
     Route: 048
  2. LYRICA [Suspect]
     Indication: CONVULSION
  3. ULTRACET [Suspect]
     Indication: MIGRAINE
     Dates: start: 20070101, end: 20070826
  4. LUNESTA [Suspect]
     Indication: INSOMNIA
     Dates: start: 20070101, end: 20070101
  5. IMITREX [Suspect]
     Indication: MIGRAINE
     Dates: start: 20070101, end: 20070101
  6. SOMA [Concomitant]
  7. LODINE [Concomitant]
  8. ASPIRIN [Concomitant]
  9. NASONEX [Concomitant]
  10. LORATADINE [Concomitant]
  11. PREVACID [Concomitant]
  12. MONTELUKAST SODIUM [Concomitant]
  13. ALL OTHER THERAPEUTIC PRODUCTS [Concomitant]
  14. FISH OIL [Concomitant]
  15. VITAMIN A [Concomitant]
  16. ASCORBIC ACID [Concomitant]
  17. CALCIUM WITH VITAMIN D [Concomitant]

REACTIONS (6)
  - ABNORMAL SENSATION IN EYE [None]
  - CONVULSION [None]
  - EYE MOVEMENT DISORDER [None]
  - HYPOAESTHESIA [None]
  - MALAISE [None]
  - VISUAL DISTURBANCE [None]
